FAERS Safety Report 22148228 (Version 1)
Quarter: 2023Q1

REPORT INFORMATION
  Report Type: Spontaneous
  Country: US (occurrence: None)
  Receive Date: 20230328
  Receipt Date: 20230328
  Transmission Date: 20230418
  Serious: No
  Sender: FDA-Public Use
  Company Number: None

PATIENT
  Sex: Male

DRUGS (1)
  1. NEXAVAR [Suspect]
     Active Substance: SORAFENIB
     Dosage: OTHER QUANTITY : 2 TABLETS;?FREQUENCY : DAILY;?
     Route: 048

REACTIONS (1)
  - Small intestinal obstruction [None]
